FAERS Safety Report 5376508-1 (Version None)
Quarter: 2007Q3

REPORT INFORMATION
  Report Type: 
  Country: None (occurrence: None)
  Receive Date: 20070702
  Receipt Date: 20070621
  Transmission Date: 20080115
  Serious: Yes (Disabling)
  Sender: FDA-Public Use
  Company Number: DE-SHR-DE-2007-021759

PATIENT
  Sex: Male

DRUGS (1)
  1. MAGNEVIST [Suspect]
     Dosage: UNK, 1 DOSE
     Dates: start: 20051230, end: 20060301

REACTIONS (1)
  - NEPHROGENIC SYSTEMIC FIBROSIS [None]
